FAERS Safety Report 24749168 (Version 1)
Quarter: 2024Q4

REPORT INFORMATION
  Report Type: Spontaneous
  Country: US (occurrence: US)
  Receive Date: 20241218
  Receipt Date: 20241218
  Transmission Date: 20250115
  Serious: No
  Sender: MERCK
  Company Number: US-009507513-2412USA004146

PATIENT
  Age: 67 Year
  Sex: Female

DRUGS (1)
  1. TEMODAR [Suspect]
     Active Substance: TEMOZOLOMIDE
     Indication: Glioblastoma
     Dosage: 6 CYCLES
     Route: 048

REACTIONS (3)
  - Hypermutation [Unknown]
  - Drug resistance [Unknown]
  - Product use in unapproved indication [Unknown]
